FAERS Safety Report 10142047 (Version 4)
Quarter: 2014Q2

REPORT INFORMATION
  Report Type: Not Available
  Country: US (occurrence: US)
  Receive Date: 20140429
  Receipt Date: 20140522
  Transmission Date: 20141212
  Serious: Yes (Life-Threatening, Hospitalization, Other)
  Sender: FDA-Public Use
  Company Number: US-ONYX-2014-0903

PATIENT
  Age: 66 Year
  Sex: Female

DRUGS (12)
  1. KYPROLIS [Suspect]
     Indication: PLASMA CELL MYELOMA
     Route: 042
  2. KYPROLIS [Suspect]
     Route: 042
     Dates: start: 201307
  3. KYPROLIS [Suspect]
     Route: 042
  4. KYPROLIS [Suspect]
     Route: 042
     Dates: start: 20130911, end: 201312
  5. KYPROLIS [Suspect]
     Route: 042
     Dates: start: 20140326, end: 20140327
  6. KYPROLIS [Suspect]
     Route: 042
     Dates: start: 20140402, end: 20140403
  7. OXYCONTIN [Concomitant]
     Indication: PRODUCT USED FOR UNKNOWN INDICATION
  8. OXYCODONE [Concomitant]
     Indication: PRODUCT USED FOR UNKNOWN INDICATION
  9. TYLENOL ARTHRITIS [Concomitant]
     Indication: ARTHRITIS
  10. ZOFRAN [Concomitant]
     Indication: PRODUCT USED FOR UNKNOWN INDICATION
  11. CALCIUM WITH VITAMIN D [Concomitant]
     Indication: PRODUCT USED FOR UNKNOWN INDICATION
  12. HCTZ [Concomitant]
     Indication: PRODUCT USED FOR UNKNOWN INDICATION

REACTIONS (4)
  - Myocardial infarction [Recovered/Resolved]
  - Cardiac arrest [Recovered/Resolved]
  - Coronary artery disease [Unknown]
  - Ischaemic cardiomyopathy [Unknown]
